FAERS Safety Report 9845098 (Version 1)
Quarter: 2014Q1

REPORT INFORMATION
  Report Type: Spontaneous
  Country: US (occurrence: None)
  Receive Date: 20140123
  Receipt Date: 20140123
  Transmission Date: 20141002
  Serious: Yes (Other)
  Sender: FDA-Public Use
  Company Number: None

PATIENT
  Age: 19 Year
  Sex: Female
  Weight: 113.4 kg

DRUGS (1)
  1. MACROBID [Suspect]
     Route: 048
     Dates: start: 20140118, end: 20140119

REACTIONS (8)
  - Dizziness [None]
  - Dyspnoea [None]
  - Pain [None]
  - Joint stiffness [None]
  - Arthralgia [None]
  - Hypoaesthesia [None]
  - Arthropathy [None]
  - Headache [None]
